FAERS Safety Report 5896004-2 (Version None)
Quarter: 2008Q3

REPORT INFORMATION
  Report Type: 
  Country: None (occurrence: None)
  Receive Date: 20080924
  Receipt Date: 20080916
  Transmission Date: 20090109
  Serious: Yes (Hospitalization)
  Sender: FDA-Public Use
  Company Number: US-ABBOTT-07P-163-0369583-00

PATIENT
  Sex: Female

DRUGS (3)
  1. LUPRON [Suspect]
     Indication: ASSISTED FERTILISATION
     Route: 065
     Dates: start: 20070401, end: 20070401
  2. GONAL-F RFF PEN [Suspect]
     Indication: ASSISTED FERTILISATION
     Route: 065
     Dates: start: 20070329, end: 20070401
  3. PROGESTERONE [Concomitant]
     Indication: INFERTILITY

REACTIONS (2)
  - OVARIAN DISORDER [None]
  - OVARIAN HYPERSTIMULATION SYNDROME [None]
